FAERS Safety Report 7966832 (Version 5)
Quarter: 2012Q4

REPORT INFORMATION
  Report Type: 
  Country: CA (occurrence: CA)
  Receive Date: 20110531
  Receipt Date: 20121017
  Transmission Date: 20130627
  Serious: Yes (Hospitalization, Other)
  Sender: FDA-Public Use
  Company Number: PHHY2011CA43629

PATIENT
  Sex: Male

DRUGS (3)
  1. AFINITOR [Suspect]
     Indication: PANCREATIC NEUROENDOCRINE TUMOUR METASTATIC
     Dosage: 10 mg, QD
     Route: 048
     Dates: start: 20110324, end: 20120216
  2. AFINITOR [Suspect]
     Dosage: 10 mg every other day
     Route: 048
     Dates: start: 201103, end: 20120216
  3. SANDOSTATIN LAR [Suspect]
     Indication: PANCREATIC NEUROENDOCRINE TUMOUR METASTATIC
     Dosage: 40 mg once a month
     Route: 030
     Dates: start: 20100319

REACTIONS (10)
  - Duodenal perforation [Unknown]
  - Small intestinal haemorrhage [Unknown]
  - Pancreatic fistula [Unknown]
  - Gallbladder obstruction [Unknown]
  - Pancreatic disorder [Unknown]
  - Nasopharyngitis [Unknown]
  - Diabetes mellitus [Unknown]
  - Gastrointestinal bacterial infection [Unknown]
  - Cough [Unknown]
  - Blood pressure increased [Unknown]
